FAERS Safety Report 21231485 (Version 1)
Quarter: 2022Q3

REPORT INFORMATION
  Report Type: Other
  Country: US (occurrence: None)
  Receive Date: 20220819
  Receipt Date: 20220819
  Transmission Date: 20221027
  Serious: Yes (Hospitalization)
  Sender: FDA-Public Use
  Company Number: US-ROCHE-3159462

PATIENT
  Sex: Female

DRUGS (2)
  1. ZELBORAF [Suspect]
     Active Substance: VEMURAFENIB
     Indication: Neoplasm malignant
     Dosage: TAKE 3 TABLET(S) BY MOUTH TWICE A DAY
     Route: 048
  2. ZELBORAF [Suspect]
     Active Substance: VEMURAFENIB
     Indication: Thyroid cancer

REACTIONS (2)
  - Gastric ulcer haemorrhage [Unknown]
  - Off label use [Unknown]
